FAERS Safety Report 15600793 (Version 4)
Quarter: 2019Q3

REPORT INFORMATION
  Report Type: Spontaneous
  Country: US (occurrence: US)
  Receive Date: 20181109
  Receipt Date: 20190912
  Transmission Date: 20191004
  Serious: Yes (Hospitalization, Other)
  Sender: FDA-Public Use
  Company Number: US-ELI_LILLY_AND_COMPANY-US201810014914

PATIENT
  Sex: Female

DRUGS (4)
  1. TERIPARATIDE [Suspect]
     Active Substance: TERIPARATIDE
     Dosage: UNK, UNKNOWN
     Route: 065
     Dates: start: 201908
  2. TERIPARATIDE [Suspect]
     Active Substance: TERIPARATIDE
     Indication: OSTEOPOROSIS
     Dosage: UNK UNK, UNKNOWN
     Route: 065
     Dates: start: 20180906
  3. TERIPARATIDE [Suspect]
     Active Substance: TERIPARATIDE
     Dosage: UNK, UNKNOWN
     Route: 065
     Dates: start: 20181104, end: 201812
  4. ESTROGEN [Concomitant]
     Active Substance: ESTROGENS
     Indication: PRODUCT USED FOR UNKNOWN INDICATION

REACTIONS (27)
  - Arthritis [Unknown]
  - Spinal compression fracture [Unknown]
  - Musculoskeletal discomfort [Unknown]
  - Gastric ulcer haemorrhage [Unknown]
  - Wrong technique in product usage process [Unknown]
  - Product dose omission [Unknown]
  - Incorrect product administration duration [Unknown]
  - Irritable bowel syndrome [Unknown]
  - Fall [Unknown]
  - Product dose omission [Unknown]
  - Memory impairment [Unknown]
  - Groin pain [Unknown]
  - Tendonitis [Unknown]
  - Depression [Not Recovered/Not Resolved]
  - Obsessive-compulsive disorder [Unknown]
  - Meniscus injury [Unknown]
  - Erythema [Unknown]
  - Gastric disorder [Unknown]
  - Fall [Recovered/Resolved]
  - Weight decreased [Unknown]
  - Pain [Unknown]
  - Muscle spasms [Unknown]
  - Malaise [Unknown]
  - Hip fracture [Recovering/Resolving]
  - Fibromyalgia [Not Recovered/Not Resolved]
  - Pain in extremity [Unknown]
  - Limb fracture [Unknown]

NARRATIVE: CASE EVENT DATE: 201809
